FAERS Safety Report 23084992 (Version 2)
Quarter: 2023Q4

REPORT INFORMATION
  Report Type: Report from Study
  Country: US (occurrence: US)
  Receive Date: 20231019
  Receipt Date: 20231120
  Transmission Date: 20240109
  Serious: Yes (Death, Hospitalization, Other)
  Sender: FDA-Public Use
  Company Number: US-SANDOZ-SDZ2023US010772

PATIENT
  Age: 49 Year
  Sex: Female
  Weight: 83.18 kg

DRUGS (5)
  1. TREPROSTINIL [Suspect]
     Active Substance: TREPROSTINIL
     Indication: Pulmonary arterial hypertension
     Dosage: 111 NG/KG/MIN
     Route: 042
     Dates: start: 20190813
  2. TREPROSTINIL [Suspect]
     Active Substance: TREPROSTINIL
     Dosage: 111 NG/KG/MIN
     Route: 042
     Dates: start: 20190813
  3. TREPROSTINIL [Suspect]
     Active Substance: TREPROSTINIL
     Dosage: 111 NG/KG/M I N
     Route: 042
     Dates: start: 20190813
  4. TREPROSTINIL [Suspect]
     Active Substance: TREPROSTINIL
     Dosage: 111 NG/KG/MIN
     Route: 065
     Dates: start: 20210325
  5. TADALAFIL [Concomitant]
     Active Substance: TADALAFIL
     Indication: Product used for unknown indication
     Route: 065

REACTIONS (4)
  - Pulmonary arterial hypertension [Unknown]
  - Dyspnoea [Unknown]
  - Mental status changes [Unknown]
  - Death [Fatal]

NARRATIVE: CASE EVENT DATE: 20231016
